FAERS Safety Report 17951137 (Version 1)
Quarter: 2020Q2

REPORT INFORMATION
  Report Type: Report from Study
  Country: US (occurrence: US)
  Receive Date: 20200626
  Receipt Date: 20200626
  Transmission Date: 20200714
  Serious: Yes (Other)
  Sender: FDA-Public Use
  Company Number: NVSC2020US175490

PATIENT
  Sex: Male
  Weight: 34.01 kg

DRUGS (1)
  1. ILARIS [Suspect]
     Active Substance: CANAKINUMAB
     Indication: JUVENILE IDIOPATHIC ARTHRITIS
     Dosage: 1 DF, Q4W (INJECT UNDER THE SKIN)
     Route: 065

REACTIONS (1)
  - Juvenile idiopathic arthritis [Unknown]
